FAERS Safety Report 14284774 (Version 1)
Quarter: 2017Q4

REPORT INFORMATION
  Report Type: Spontaneous
  Country: FR (occurrence: FR)
  Receive Date: 20171214
  Receipt Date: 20171214
  Transmission Date: 20180321
  Serious: Yes (Other)
  Sender: FDA-Public Use
  Company Number: FR-MERCK KGAA-2037163

PATIENT
  Sex: Female

DRUGS (1)
  1. NOVOTHYROX [Suspect]
     Active Substance: LEVOTHYROXINE SODIUM
     Indication: THYROID DISORDER

REACTIONS (14)
  - Headache [None]
  - Myalgia [None]
  - Myxoedema [None]
  - Alopecia [None]
  - Vertigo [None]
  - Eye irritation [None]
  - Aphonia [None]
  - Angina pectoris [None]
  - Gait disturbance [None]
  - Bone pain [None]
  - Visual impairment [None]
  - Facial paralysis [None]
  - Acne [None]
  - Fatigue [None]
